FAERS Safety Report 15051586 (Version 5)
Quarter: 2018Q3

REPORT INFORMATION
  Report Type: Report from Study
  Country: US (occurrence: US)
  Receive Date: 20180622
  Receipt Date: 20180831
  Transmission Date: 20181010
  Serious: Yes (Hospitalization, Other)
  Sender: FDA-Public Use
  Company Number: US-JNJFOC-20180627783

PATIENT
  Sex: Male

DRUGS (21)
  1. IMBRUVICA [Concomitant]
     Active Substance: IBRUTINIB
     Indication: CEREBRAL DISORDER
     Route: 048
     Dates: start: 20180219
  2. METHOCARBAMOL. [Concomitant]
     Active Substance: METHOCARBAMOL
  3. IMBRUVICA [Concomitant]
     Active Substance: IBRUTINIB
     Indication: WALDENSTROM^S MACROGLOBULINAEMIA
     Route: 048
     Dates: start: 20180220, end: 20180420
  4. IMBRUVICA [Suspect]
     Active Substance: IBRUTINIB
     Indication: CEREBRAL DISORDER
     Route: 048
     Dates: start: 20180421, end: 2018
  5. DIAZEPAM. [Concomitant]
     Active Substance: DIAZEPAM
  6. TRAZODONE [Concomitant]
     Active Substance: TRAZODONE HYDROCHLORIDE
  7. KLONOPIN [Concomitant]
     Active Substance: CLONAZEPAM
  8. ATOVAQUONE. [Concomitant]
     Active Substance: ATOVAQUONE
  9. IMBRUVICA [Suspect]
     Active Substance: IBRUTINIB
     Indication: WALDENSTROM^S MACROGLOBULINAEMIA
     Route: 048
     Dates: start: 20180420
  10. IMBRUVICA [Suspect]
     Active Substance: IBRUTINIB
     Indication: WALDENSTROM^S MACROGLOBULINAEMIA
     Route: 048
     Dates: start: 20180421, end: 2018
  11. IMBRUVICA [Concomitant]
     Active Substance: IBRUTINIB
     Indication: WALDENSTROM^S MACROGLOBULINAEMIA
     Route: 048
     Dates: start: 20180219
  12. CLONAZEPAM. [Concomitant]
     Active Substance: CLONAZEPAM
  13. IMBRUVICA [Suspect]
     Active Substance: IBRUTINIB
     Indication: CEREBRAL DISORDER
     Route: 048
     Dates: start: 20180420
  14. SEROQUEL [Suspect]
     Active Substance: QUETIAPINE FUMARATE
     Indication: SUICIDE ATTEMPT
     Dosage: 40
     Route: 065
  15. IMBRUVICA [Concomitant]
     Active Substance: IBRUTINIB
     Indication: CEREBRAL DISORDER
     Route: 048
     Dates: start: 20180220, end: 20180420
  16. HYDROXYZINE HCL [Concomitant]
     Active Substance: HYDROXYZINE HYDROCHLORIDE
  17. LOSARTAN. [Concomitant]
     Active Substance: LOSARTAN
  18. MIRTAZAPINE. [Concomitant]
     Active Substance: MIRTAZAPINE
  19. VICODIN [Suspect]
     Active Substance: ACETAMINOPHEN\HYDROCODONE BITARTRATE
     Indication: SUICIDE ATTEMPT
     Route: 065
  20. IBUPROFEN. [Concomitant]
     Active Substance: IBUPROFEN
  21. DESVENLAFAXINE. [Concomitant]
     Active Substance: DESVENLAFAXINE

REACTIONS (7)
  - Psychiatric symptom [Unknown]
  - Paranoia [Unknown]
  - Glaucoma [Unknown]
  - Anxiety [Unknown]
  - Depression [Unknown]
  - Haemorrhage [Unknown]
  - Suicide attempt [Unknown]

NARRATIVE: CASE EVENT DATE: 2018
